FAERS Safety Report 17622936 (Version 1)
Quarter: 2020Q2

REPORT INFORMATION
  Report Type: Spontaneous
  Country: GB (occurrence: CN)
  Receive Date: 20200403
  Receipt Date: 20200403
  Transmission Date: 20200713
  Serious: Yes (Other)
  Sender: FDA-Public Use
  Company Number: CN-ASTELLAS-2020US012314

PATIENT
  Age: 52 Year
  Sex: Female
  Weight: 46 kg

DRUGS (11)
  1. PEMETREXED. [Concomitant]
     Active Substance: PEMETREXED
     Dosage: 800 MG, 12 CYCLES
     Route: 065
     Dates: start: 20171129
  2. ICOTINIB [Concomitant]
     Active Substance: ICOTINIB
     Indication: METASTASES TO BONE
  3. TARCEVA [Suspect]
     Active Substance: ERLOTINIB HYDROCHLORIDE
     Indication: LUNG ADENOCARCINOMA
     Route: 065
     Dates: start: 20170823, end: 20171129
  4. MANNITOL. [Concomitant]
     Active Substance: MANNITOL
     Indication: PRODUCT USED FOR UNKNOWN INDICATION
     Route: 065
     Dates: start: 20170822
  5. CARBOPLATIN. [Concomitant]
     Active Substance: CARBOPLATIN
     Indication: LUNG ADENOCARCINOMA
     Route: 065
     Dates: start: 20170823, end: 20171129
  6. ICOTINIB [Concomitant]
     Active Substance: ICOTINIB
     Indication: LUNG ADENOCARCINOMA
     Dosage: UNK UNK, UNKNOWN FREQ.
     Route: 065
     Dates: start: 20170621, end: 20170819
  7. OSIMERTINIB. [Concomitant]
     Active Substance: OSIMERTINIB
     Route: 065
     Dates: start: 20180901, end: 20190709
  8. PEMETREXED. [Concomitant]
     Active Substance: PEMETREXED
     Indication: LUNG ADENOCARCINOMA
     Dosage: 800 MG, 12 CYCLES
     Route: 065
     Dates: start: 20170823, end: 20171129
  9. DEXAMETHASONE. [Concomitant]
     Active Substance: DEXAMETHASONE
     Indication: LUNG ADENOCARCINOMA
     Route: 065
     Dates: start: 20170822
  10. CARBOPLATIN. [Concomitant]
     Active Substance: CARBOPLATIN
     Route: 065
     Dates: start: 20170822
  11. OSIMERTINIB. [Concomitant]
     Active Substance: OSIMERTINIB
     Indication: LUNG ADENOCARCINOMA
     Route: 065
     Dates: start: 20171129, end: 20180830

REACTIONS (3)
  - Hydrothorax [Recovering/Resolving]
  - Nervous system injury [Recovering/Resolving]
  - Drug resistance [Unknown]

NARRATIVE: CASE EVENT DATE: 2019
